FAERS Safety Report 15777715 (Version 1)
Quarter: 2018Q4

REPORT INFORMATION
  Report Type: Spontaneous
  Country: US (occurrence: US)
  Receive Date: 20181231
  Receipt Date: 20181231
  Transmission Date: 20190205
  Serious: Yes (Death)
  Sender: FDA-Public Use
  Company Number: None

PATIENT
  Age: 47 Year
  Sex: Female

DRUGS (37)
  1. SENSIPAR [Suspect]
     Active Substance: CINACALCET HYDROCHLORIDE
     Indication: END STAGE RENAL DISEASE
     Route: 048
     Dates: start: 20151229
  2. CHOLRCALCIFE [Concomitant]
  3. TOPAMAX [Concomitant]
     Active Substance: TOPIRAMATE
  4. NEPHROCAPS [Concomitant]
     Active Substance: ASCORBIC ACID\BIOTIN\CYANOCOBALAMIN\FOLIC ACID\NIACIN\PANTOTHENIC ACID\PYRIDOXINE\RIBOFLAVIN\THIAMINE
  5. DOCUSATE [Concomitant]
     Active Substance: DOCUSATE
  6. FOLBEE PLUS [Concomitant]
  7. REQUIP [Concomitant]
     Active Substance: ROPINIROLE HYDROCHLORIDE
  8. HYDRAZALINE [Concomitant]
  9. METOCLOPRAM [Concomitant]
     Active Substance: METOCLOPRAMIDE
  10. NOVOLIN [Concomitant]
     Active Substance: INSULIN HUMAN
  11. ACETAMIN [Concomitant]
     Active Substance: ACETAMINOPHEN
  12. BISACODYL. [Concomitant]
     Active Substance: BISACODYL
  13. CALCIUM [Concomitant]
     Active Substance: CALCIUM
  14. CLARITIN [Concomitant]
     Active Substance: LORATADINE
  15. INSTA- GLUCOS GEL [Concomitant]
  16. ZOFRAN [Concomitant]
     Active Substance: ONDANSETRON HYDROCHLORIDE
  17. ASPIRIN. [Concomitant]
     Active Substance: ASPIRIN
  18. GERI-TUSSIN EXPECTORANT [Concomitant]
     Active Substance: GUAIFENESIN
  19. TRAZODONE [Concomitant]
     Active Substance: TRAZODONE HYDROCHLORIDE
  20. RENVELA [Concomitant]
     Active Substance: SEVELAMER CARBONATE
  21. LACTOSE [Concomitant]
     Active Substance: LACTOSE
  22. LANTUS [Concomitant]
     Active Substance: INSULIN GLARGINE
  23. MENTHOL COUGH [Concomitant]
  24. MUSCLE RUB [Concomitant]
     Active Substance: MENTHOL\METHYL SALICYLATE
  25. ENBREL [Suspect]
     Active Substance: ETANERCEPT
     Indication: POLYARTHRITIS
     Dosage: ?          OTHER FREQUENCY:QW;?
     Route: 058
     Dates: start: 20151229
  26. CITALOPRAM [Concomitant]
     Active Substance: CITALOPRAM HYDROBROMIDE
  27. PRAVACHOL [Concomitant]
     Active Substance: PRAVASTATIN SODIUM
  28. GABAPENTIN. [Concomitant]
     Active Substance: GABAPENTIN
  29. PHENYTOIN. [Concomitant]
     Active Substance: PHENYTOIN
  30. GLUCAGON. [Concomitant]
     Active Substance: GLUCAGON
  31. LABETALIL [Concomitant]
  32. OMEPRAZOLE. [Concomitant]
     Active Substance: OMEPRAZOLE
  33. PERCOCET [Concomitant]
     Active Substance: ACETAMINOPHEN\OXYCODONE HYDROCHLORIDE
  34. DILTIAZEM. [Concomitant]
     Active Substance: DILTIAZEM
  35. SCOPOLAMINE [Concomitant]
     Active Substance: SCOPOLAMINE
  36. SUCRALFATE. [Concomitant]
     Active Substance: SUCRALFATE
  37. VICKS [Concomitant]

REACTIONS (1)
  - Death [None]

NARRATIVE: CASE EVENT DATE: 20181217
